FAERS Safety Report 17804339 (Version 4)
Quarter: 2020Q2

REPORT INFORMATION
  Report Type: Spontaneous
  Country: CN (occurrence: CN)
  Receive Date: 20200519
  Receipt Date: 20200610
  Transmission Date: 20200714
  Serious: Yes (Hospitalization)
  Sender: FDA-Public Use
  Company Number: CN-GILEAD-2020-0467606

PATIENT
  Age: 32 Year
  Sex: Male

DRUGS (4)
  1. WEI YANG LING KE LI [Concomitant]
     Dosage: UNK
  2. YIN HUANG KE LI [Concomitant]
     Dosage: UNK
  3. VEMLIDY [Suspect]
     Active Substance: TENOFOVIR ALAFENAMIDE FUMARATE
     Indication: HEPATITIS B
     Dosage: 1 DOSAGE FORM, QD
     Route: 048
     Dates: start: 202004, end: 202005
  4. LI JIA LONG [Concomitant]
     Dosage: UNK

REACTIONS (4)
  - Musculoskeletal pain [Recovering/Resolving]
  - Intentional product use issue [Recovered/Resolved]
  - Abdominal pain [Recovering/Resolving]
  - Abdominal distension [Recovering/Resolving]

NARRATIVE: CASE EVENT DATE: 2020
